FAERS Safety Report 4541160-1 (Version None)
Quarter: 2004Q4

REPORT INFORMATION
  Report Type: 
  Country: None (occurrence: None)
  Receive Date: 20041227
  Receipt Date: 20041217
  Transmission Date: 20050328
  Serious: Yes (Hospitalization)
  Sender: FDA-Public Use
  Company Number: FRWYE290717DEC04

PATIENT
  Age: 84 Year
  Sex: Female

DRUGS (12)
  1. EFFEXOR [Suspect]
     Indication: DEPRESSION
     Dosage: 37.5 MG 1X PER 1 DAY ORAL
     Route: 048
     Dates: start: 20041112, end: 20041114
  2. PAROXETINE HCL [Suspect]
     Indication: DEPRESSION
     Dosage: 20 MG 1X PER 1 DAY ORAL
     Route: 048
     Dates: start: 20041108, end: 20041112
  3. PRACTAZIN (ALTIZIDE/SPIRONOLACTONE, ,0) [Suspect]
     Dosage: 1 TABLET 1X PER 1 DAY ORAL
     Route: 048
     Dates: end: 20041114
  4. SELOKEN - SLOW RELEASE (METOPROLOL TARTRATE, ,0) [Suspect]
     Dosage: 200 MG 1X PER 1 DAY ORAL
     Route: 048
  5. URBANYL (CLOBAZAM, ,0) [Suspect]
     Indication: DEPRESSION
     Dosage: 1 DOSE 2X PER 1 DAY ORAL
     Route: 048
     Dates: start: 20041112, end: 20041114
  6. FOSAMAX [Concomitant]
  7. MORPHINE SULFATE [Concomitant]
  8. GINKOR (GINKGO TREE LEAVES EXTRACT/TROXERUTIN) [Concomitant]
  9. NEXIUM [Concomitant]
  10. FORLAX (MACROGOL) [Concomitant]
  11. SPAGULAX (ISPHAGHULA) [Concomitant]
  12. FRAGMIN [Concomitant]

REACTIONS (7)
  - CONDITION AGGRAVATED [None]
  - DISORIENTATION [None]
  - DRUG INTERACTION [None]
  - HYPONATRAEMIA [None]
  - MALAISE [None]
  - SINUS BRADYCARDIA [None]
  - SOMNOLENCE [None]
